FAERS Safety Report 5099302-8 (Version None)
Quarter: 2006Q3

REPORT INFORMATION
  Report Type: 
  Country: None (occurrence: None)
  Receive Date: 20060728
  Receipt Date: 20060424
  Transmission Date: 20061208
  Serious: No
  Sender: FDA-Public Use
  Company Number: COT_0516_2006

PATIENT
  Age: 83 Year
  Sex: Male
  Weight: 103.4201 kg

DRUGS (10)
  1. VENTAVIS [Suspect]
     Indication: PULMONARY HYPERTENSION
     Dosage: 5 MCG 6XD IH
     Dates: start: 20060420, end: 20060420
  2. LASIX [Concomitant]
  3. COUMADIN [Concomitant]
  4. BENADRYL [Concomitant]
  5. GLIPIZIDE [Concomitant]
  6. LIPITOR [Concomitant]
  7. ATACAND [Concomitant]
  8. LEVOTHYROXINE SODIUM [Concomitant]
  9. PRILOSEC [Concomitant]
  10. OXYGEN [Concomitant]

REACTIONS (4)
  - DIZZINESS [None]
  - EYE SWELLING [None]
  - HEART RATE IRREGULAR [None]
  - TINNITUS [None]
